FAERS Safety Report 9179031 (Version 1)
Quarter: 2012Q4

REPORT INFORMATION
  Report Type: Report from Study
  Country: DE (occurrence: DE)
  Receive Date: 20121029
  Receipt Date: 20121029
  Transmission Date: 20130627
  Serious: Yes (Hospitalization)
  Sender: FDA-Public Use
  Company Number: DE-GENZYME-CAMP-1002491

PATIENT
  Age: 63 Year
  Sex: Female
  Weight: 68 kg

DRUGS (8)
  1. CAMPATH [Suspect]
     Indication: T-CELL PROLYMPHOCYTIC LEUKAEMIA
     Dosage: 10 mg, qd, Number of cycles (induction): 2
     Route: 058
     Dates: start: 20120918
  2. FLUDARA [Suspect]
     Indication: T-CELL PROLYMPHOCYTIC LEUKAEMIA
     Dosage: 33.8 mg, qd, Number of cycles (induction): 2
     Route: 042
     Dates: start: 20120918
  3. CYCLOPHOSPHAMIDE [Suspect]
     Indication: T-CELL PROLYMPHOCYTIC LEUKAEMIA
     Dosage: 330 mg, qd, Number of cycles (induction): 2
     Route: 042
     Dates: start: 20120918
  4. MITOXANTRONE [Suspect]
     Indication: T-CELL PROLYMPHOCYTIC LEUKAEMIA
     Dosage: 10 mg, qd, Number of cycles (induction): 2
     Route: 042
     Dates: start: 20120918
  5. METOPROLOL [Concomitant]
     Indication: PRODUCT USED FOR UNKNOWN INDICATION
     Dosage: 200 mg, qd
     Route: 048
  6. METFORMIN [Concomitant]
     Indication: PRODUCT USED FOR UNKNOWN INDICATION
     Dosage: 1 g, qd
     Route: 048
  7. RAMIPRIL [Concomitant]
     Indication: PRODUCT USED FOR UNKNOWN INDICATION
     Dosage: 5 mg, qd
     Route: 048
  8. HYDROCHLOROTHIAZID [Concomitant]
     Indication: PRODUCT USED FOR UNKNOWN INDICATION
     Dosage: 25 mg, qd
     Route: 048

REACTIONS (4)
  - Renal failure [Unknown]
  - Hypokalaemia [Unknown]
  - Dehydration [Recovered/Resolved]
  - Headache [Unknown]
